FAERS Safety Report 11692741 (Version 1)
Quarter: 2015Q4

REPORT INFORMATION
  Report Type: Spontaneous
  Country: US (occurrence: None)
  Receive Date: 20151102
  Receipt Date: 20151102
  Transmission Date: 20160304
  Serious: Yes (Death)
  Sender: FDA-Public Use
  Company Number: None

PATIENT
  Age: 68 Year
  Sex: Female

DRUGS (1)
  1. LETAIRIS [Suspect]
     Active Substance: AMBRISENTAN
     Indication: PULMONARY ARTERIAL HYPERTENSION
     Route: 048
     Dates: start: 20141216, end: 20150925

REACTIONS (5)
  - Lethargy [None]
  - Right ventricular failure [None]
  - Hypercapnia [None]
  - Hypoxia [None]
  - Acute respiratory failure [None]

NARRATIVE: CASE EVENT DATE: 20151010
